FAERS Safety Report 6361525-5 (Version None)
Quarter: 2009Q3

REPORT INFORMATION
  Report Type: 
  Country: None (occurrence: None)
  Receive Date: 20090918
  Receipt Date: 20090908
  Transmission Date: 20100115
  Serious: Yes (Hospitalization, Other)
  Sender: FDA-Public Use
  Company Number: GB-ABBOTT-09P-167-0587024-00

PATIENT
  Sex: Female
  Weight: 60.5 kg

DRUGS (3)
  1. HUMIRA [Suspect]
     Indication: CROHN'S DISEASE
     Route: 058
     Dates: start: 20081219, end: 20090709
  2. HYDROCORTISONE [Concomitant]
     Indication: ADRENAL INSUFFICIENCY
  3. ASACOL [Concomitant]
     Indication: CROHN'S DISEASE

REACTIONS (3)
  - CROHN'S DISEASE [None]
  - HENOCH-SCHONLEIN PURPURA [None]
  - RASH [None]
